FAERS Safety Report 6932306-6 (Version None)
Quarter: 2010Q3

REPORT INFORMATION
  Report Type: 
  Country: None (occurrence: None)
  Receive Date: 20100819
  Receipt Date: 20091117
  Transmission Date: 20110219
  Serious: Yes (Hospitalization)
  Sender: FDA-Public Use
  Company Number: IT-ROCHE-721777

PATIENT
  Sex: Female

DRUGS (2)
  1. NAPROXEN SODIUM [Suspect]
     Indication: PRODUCT USED FOR UNKNOWN INDICATION
     Dosage: FREQUENCY: QD.
     Route: 048
     Dates: start: 20080406, end: 20090408
  2. ZESTRIL [Concomitant]
     Indication: HYPERTENSION
     Dates: start: 20070101

REACTIONS (6)
  - ABDOMINAL PAIN UPPER [None]
  - ERYTHEMA [None]
  - EYELID OEDEMA [None]
  - HEADACHE [None]
  - PRURITUS [None]
  - THROAT TIGHTNESS [None]
